FAERS Safety Report 14022013 (Version 2)
Quarter: 2018Q4

REPORT INFORMATION
  Report Type: Spontaneous
  Country: JP (occurrence: JP)
  Receive Date: 20170928
  Receipt Date: 20181011
  Transmission Date: 20190204
  Serious: Yes (Death, Hospitalization, Other)
  Sender: FDA-Public Use
  Company Number: JP-TEVA-201709_00000678

PATIENT
  Age: 69 Year
  Sex: Female
  Weight: 39 kg

DRUGS (37)
  1. DICLOFENAC SODIUM 25 MG AND 12.5 MG [Suspect]
     Active Substance: DICLOFENAC SODIUM
     Indication: PYREXIA
     Dosage: 50 MILLIGRAM DAILY;
     Route: 054
  2. PARACETAMOL, TRAMADOL HYDROCHLORIDE [Suspect]
     Active Substance: ACETAMINOPHEN\TRAMADOL HYDROCHLORIDE
     Indication: PRODUCT USED FOR UNKNOWN INDICATION
     Dosage: 3 DOSAGE FORMS DAILY;
     Route: 048
  3. FOLIC ACID. [Concomitant]
     Active Substance: FOLIC ACID
     Dosage: 5 MILLIGRAM DAILY;
     Route: 048
  4. SULFAMETHOXAZOLE, TRIMETHOPRIM [Concomitant]
     Active Substance: SULFAMETHOXAZOLE\TRIMETHOPRIM
     Dosage: 1 DOSAGE FORMS DAILY;
     Route: 048
     Dates: start: 20141225, end: 20150119
  5. LANSOPRAZOLE. [Suspect]
     Active Substance: LANSOPRAZOLE
     Dosage: 15 MILLIGRAM DAILY;
     Route: 048
     Dates: start: 20141219, end: 20150119
  6. LANSOPRAZOLE. [Suspect]
     Active Substance: LANSOPRAZOLE
     Dosage: 60 MILLIGRAM DAILY;
     Route: 042
     Dates: start: 20141216, end: 20141218
  7. DICLOFENAC SODIUM 25 MG AND 12.5 MG [Suspect]
     Active Substance: DICLOFENAC SODIUM
     Indication: PAIN
     Route: 054
  8. DICLOFENAC SODIUM 25 MG AND 12.5 MG [Suspect]
     Active Substance: DICLOFENAC SODIUM
     Dosage: 12.5 MILLIGRAM DAILY;
     Route: 054
     Dates: start: 20141231, end: 20150101
  9. SULFAMETHOXAZOLE, TRIMETHOPRIM [Concomitant]
     Active Substance: SULFAMETHOXAZOLE\TRIMETHOPRIM
     Indication: INFECTION PROPHYLAXIS
     Dosage: 1 DOSAGE FORMS DAILY;
     Route: 048
     Dates: start: 20141118, end: 20141128
  10. SODIUM BICARBONATE, SODIUM PHOSPHATE MONOBASIC (ANHYDRATE) [Concomitant]
     Indication: CONSTIPATION
     Dosage: 1 DOSAGE FORMS DAILY;
     Route: 054
     Dates: start: 20141226, end: 20141226
  11. INSULIN HUMAN [Concomitant]
     Active Substance: INSULIN HUMAN
     Indication: HYPERGLYCAEMIA
     Route: 058
     Dates: start: 20141211
  12. PREDNISOLONE TABLETS 5MG AND 1MG [Suspect]
     Active Substance: PREDNISOLONE
     Dosage: 40 MILLIGRAM DAILY;
     Route: 048
     Dates: start: 20141213, end: 20141215
  13. METHOTREXATE 2 MG [Suspect]
     Active Substance: METHOTREXATE
     Indication: PRODUCT USED FOR UNKNOWN INDICATION
     Dosage: .2857 MILLIGRAM DAILY;
     Route: 048
     Dates: start: 2004, end: 20141118
  14. TERIPARATIDE [Concomitant]
     Active Substance: TERIPARATIDE
     Dosage: 1 DOSAGE FORMS DAILY;
     Route: 058
     Dates: end: 20141118
  15. DIFLUCORTOLONE VALERATE, LIDOCAINE [Concomitant]
     Indication: HAEMORRHOIDS
     Dosage: 2 GRAM DAILY;
     Route: 062
     Dates: start: 20150112, end: 20150119
  16. PREDNISOLONE TABLETS 5MG AND 1MG [Suspect]
     Active Substance: PREDNISOLONE
     Dosage: 25 MILLIGRAM DAILY;
     Route: 048
     Dates: start: 20141128, end: 20141210
  17. PREDNISOLONE TABLETS 5MG AND 1MG [Suspect]
     Active Substance: PREDNISOLONE
     Dosage: 40 MILLIGRAM DAILY;
     Route: 048
     Dates: start: 20141219, end: 20141226
  18. PREDNISOLONE TABLETS 5MG AND 1MG [Suspect]
     Active Substance: PREDNISOLONE
     Dosage: 30 MILLIGRAM DAILY;
     Route: 048
     Dates: start: 20150106, end: 20150112
  19. PREDNISOLONE TABLETS 5MG AND 1MG [Suspect]
     Active Substance: PREDNISOLONE
     Dosage: 25 MILLIGRAM DAILY;
     Route: 048
     Dates: start: 20150113, end: 20150119
  20. CALCIUM POLYSTYRENE SULFONATE (20%) 25 G [Suspect]
     Active Substance: CALCIUM POLYSTYRENE SULFONATE
     Indication: HYPERKALAEMIA
     Dosage: 50 GRAM DAILY;
     Route: 048
     Dates: start: 20141128, end: 20150119
  21. WARFARIN POTASSIUM [Concomitant]
     Active Substance: WARFARIN POTASSIUM
     Indication: VENOUS THROMBOSIS LIMB
     Route: 048
     Dates: start: 20091208, end: 20141225
  22. ATOVAQUONE. [Concomitant]
     Active Substance: ATOVAQUONE
     Indication: PSEUDOMEMBRANOUS COLITIS
     Dosage: 1500 MILLIGRAM DAILY;
     Route: 048
     Dates: start: 20150113, end: 20150119
  23. PREDNISOLONE TABLETS 5MG AND 1MG [Suspect]
     Active Substance: PREDNISOLONE
     Dosage: 35 MILLIGRAM DAILY;
     Route: 048
     Dates: start: 20141227, end: 20150105
  24. LANSOPRAZOLE. [Suspect]
     Active Substance: LANSOPRAZOLE
     Indication: PROPHYLAXIS AGAINST GASTROINTESTINAL ULCER
     Dosage: 15 MILLIGRAM DAILY;
     Route: 048
     Dates: end: 20141210
  25. DICLOFENAC SODIUM 25 MG AND 12.5 MG [Suspect]
     Active Substance: DICLOFENAC SODIUM
     Dosage: 50 MILLIGRAM DAILY;
     Route: 054
     Dates: start: 201501, end: 20150119
  26. PARACETAMOL [Concomitant]
     Active Substance: ACETAMINOPHEN
     Indication: PYREXIA
     Route: 054
  27. SENNOSIDE A+B CALCIUM [Concomitant]
     Active Substance: SENNOSIDES A AND B
     Indication: CONSTIPATION
     Dosage: 12 MILLIGRAM DAILY;
     Route: 048
     Dates: start: 20141231, end: 20141231
  28. ESOMEPRAZOLE MAGNESIUM. [Concomitant]
     Active Substance: ESOMEPRAZOLE MAGNESIUM
     Indication: PROPHYLAXIS AGAINST GASTROINTESTINAL ULCER
     Dosage: 20 MILLIGRAM DAILY;
     Route: 048
     Dates: start: 20141213, end: 20141215
  29. PARACETAMOL [Concomitant]
     Active Substance: ACETAMINOPHEN
     Indication: PAIN
     Dosage: 200 MILLIGRAM DAILY;
     Route: 054
     Dates: start: 20141223, end: 20141223
  30. ALFACALCIDOL [Concomitant]
     Active Substance: ALFACALCIDOL
     Indication: OSTEOPOROSIS
     Dosage: .25 MICROGRAM DAILY;
     Route: 048
     Dates: start: 20141225, end: 20150119
  31. EDOXABAN TOSILATE [Concomitant]
     Active Substance: EDOXABAN TOSYLATE
     Indication: VENOUS THROMBOSIS LIMB
     Dosage: 30 MILLIGRAM DAILY;
     Route: 048
     Dates: start: 20141226, end: 20150119
  32. MAGNESIUM OXIDE. [Concomitant]
     Active Substance: MAGNESIUM OXIDE
     Indication: CONSTIPATION
     Dosage: 1500 MILLIGRAM DAILY;
     Route: 048
     Dates: start: 20150107, end: 20150117
  33. PANAX GINSENG ROOT, ZANTHOXYLUM PIPERITUM PERICARP, ZINGIBER OFFICINAL [Concomitant]
     Indication: INFECTION PROPHYLAXIS
     Dosage: 7.5 GRAM DAILY;
     Route: 048
     Dates: start: 20150113, end: 20150119
  34. PREDNISOLONE TABLETS 5MG AND 1MG [Suspect]
     Active Substance: PREDNISOLONE
     Indication: INTERSTITIAL LUNG DISEASE
     Dosage: 30 MILLIGRAM DAILY;
     Route: 048
     Dates: start: 20141118, end: 20141127
  35. PREDNISOLONE TABLETS 5MG AND 1MG [Suspect]
     Active Substance: PREDNISOLONE
     Dosage: 3 MILLIGRAM DAILY;
     Route: 048
  36. LANSOPRAZOLE. [Suspect]
     Active Substance: LANSOPRAZOLE
     Dosage: 60 MILLIGRAM DAILY;
     Route: 042
     Dates: start: 20141210, end: 20141212
  37. TOCILIZUMAB 162 MG [Suspect]
     Active Substance: TOCILIZUMAB
     Indication: PRODUCT USED FOR UNKNOWN INDICATION
     Dosage: 23.1429 MILLIGRAM DAILY; SUBCUTANEOUS AUTOINJECTOR
     Route: 050
     Dates: end: 20141105

REACTIONS (4)
  - Interstitial lung disease [Fatal]
  - Septic shock [Fatal]
  - Rectal ulcer [Fatal]
  - Large intestine perforation [Fatal]

NARRATIVE: CASE EVENT DATE: 20141118
